FAERS Safety Report 17714452 (Version 1)
Quarter: 2020Q2

REPORT INFORMATION
  Report Type: Spontaneous
  Country: US (occurrence: US)
  Receive Date: 20200427
  Receipt Date: 20200427
  Transmission Date: 20200714
  Serious: No
  Sender: FDA-Public Use
  Company Number: US-PFIZER INC-2020168714

PATIENT
  Age: 62 Year
  Weight: 106.58 kg

DRUGS (2)
  1. CHANTIX [Suspect]
     Active Substance: VARENICLINE TARTRATE
     Indication: SMOKING CESSATION THERAPY
     Dosage: UNK, 2X/DAY; (IT^S A PACKAGE, ^0.58^, )
     Route: 048
  2. ASPIRIN (E.C.) [Concomitant]
     Active Substance: ASPIRIN

REACTIONS (2)
  - Nervousness [Unknown]
  - Tension [Unknown]
